FAERS Safety Report 5724481-6 (Version None)
Quarter: 2008Q2

REPORT INFORMATION
  Report Type: 
  Country: None (occurrence: None)
  Receive Date: 20080429
  Receipt Date: 20080414
  Transmission Date: 20081010
  Serious: Yes (Hospitalization)
  Sender: FDA-Public Use
  Company Number: PL-JNJFOC-20080401837

PATIENT
  Age: 67 Year
  Sex: Female

DRUGS (1)
  1. DECITABINE (DECITABINE) LYOPHILIZED POWDER [Suspect]
     Indication: ACUTE MYELOID LEUKAEMIA
     Dosage: 34.5 MG, IN 1 DAY, INTRAVENOUS
     Route: 042
     Dates: start: 20080305, end: 20080308

REACTIONS (2)
  - HERPES SIMPLEX [None]
  - INFLAMMATION [None]
